FAERS Safety Report 16015654 (Version 1)
Quarter: 2019Q1

REPORT INFORMATION
  Report Type: Spontaneous
  Country: US (occurrence: US)
  Receive Date: 20190228
  Receipt Date: 20190228
  Transmission Date: 20190418
  Serious: No
  Sender: FDA-Public Use
  Company Number: US-009507513-1902USA010597

PATIENT
  Sex: Female
  Weight: 63.96 kg

DRUGS (1)
  1. PRINIVIL [Suspect]
     Active Substance: LISINOPRIL
     Indication: CARDIAC DISORDER
     Dosage: 2.5 MG TABLET, ONCE A DAY

REACTIONS (2)
  - Incorrect dose administered [Unknown]
  - Drug hypersensitivity [Unknown]
